FAERS Safety Report 18532124 (Version 1)
Quarter: 2020Q4

REPORT INFORMATION
  Report Type: Spontaneous
  Country: US (occurrence: US)
  Receive Date: 20201123
  Receipt Date: 20201123
  Transmission Date: 20210114
  Serious: No
  Sender: FDA-Public Use
  Company Number: US-009507513-2011USA009234

PATIENT
  Age: 63 Year
  Sex: Female
  Weight: 75.92 kg

DRUGS (3)
  1. ASMANEX [Suspect]
     Active Substance: MOMETASONE FUROATE
     Indication: COUGH
     Dosage: 110 MILLIGRAM 30 METER DOSE
     Dates: start: 20201029
  2. SINGULAIR [Suspect]
     Active Substance: MONTELUKAST SODIUM
     Indication: COUGH
     Dosage: UNK
     Route: 048
  3. DOXYCYCLINE. [Concomitant]
     Active Substance: DOXYCYCLINE

REACTIONS (7)
  - Cough [Not Recovered/Not Resolved]
  - Product use in unapproved indication [Unknown]
  - Device malfunction [Unknown]
  - Poor quality device used [Unknown]
  - Product dose omission issue [Unknown]
  - Wrong technique in device usage process [Unknown]
  - Product prescribing issue [Unknown]

NARRATIVE: CASE EVENT DATE: 2020
